FAERS Safety Report 8284378-7 (Version None)
Quarter: 2012Q2

REPORT INFORMATION
  Report Type: 
  Country: None (occurrence: None)
  Receive Date: 20120413
  Receipt Date: 20120120
  Transmission Date: 20120825
  Serious: No
  Sender: FDA-Public Use
  Company Number: US-ASTRAZENECA-2010SE60892

PATIENT
  Age: 51 Year
  Sex: Male

DRUGS (3)
  1. NEXIUM [Suspect]
     Route: 048
  2. NIGHT TIME MEDICINES [Suspect]
  3. ANTIBIOTICS [Suspect]

REACTIONS (7)
  - SOMNOLENCE [None]
  - BRONCHITIS [None]
  - NASOPHARYNGITIS [None]
  - SINUS DISORDER [None]
  - INCORRECT DOSE ADMINISTERED [None]
  - HEADACHE [None]
  - INFLUENZA [None]
